FAERS Safety Report 5710265-1 (Version None)
Quarter: 2008Q2

REPORT INFORMATION
  Report Type: 
  Country: None (occurrence: None)
  Receive Date: 20080418
  Receipt Date: 20080415
  Transmission Date: 20081010
  Serious: Yes (Hospitalization)
  Sender: FDA-Public Use
  Company Number: JP-BOEHRINGER INGELHEIM GMBH, GERMANY-2008-BP-05488NB

PATIENT
  Age: 74 Year
  Sex: Female

DRUGS (14)
  1. SPIRIVA [Suspect]
     Indication: CHRONIC OBSTRUCTIVE PULMONARY DISEASE
     Route: 055
     Dates: start: 20080229, end: 20080331
  2. FLUTIDE [Suspect]
     Indication: ASTHMA
     Route: 055
     Dates: end: 20080331
  3. QVAR 40 [Suspect]
     Indication: ASTHMA
     Route: 055
     Dates: start: 20080404, end: 20080404
  4. VESANOID [Concomitant]
     Indication: LEUKAEMIA
     Route: 048
     Dates: start: 20080126
  5. VENETLIN [Concomitant]
     Indication: ASTHMA
     Route: 055
     Dates: start: 20080229
  6. ALEVAIRE [Concomitant]
     Indication: ASTHMA
     Route: 055
     Dates: start: 20080229
  7. MUCOFILIN [Concomitant]
     Indication: ASTHMA
     Route: 055
     Dates: start: 20080229
  8. BAKTAR [Concomitant]
     Route: 065
     Dates: start: 20080201, end: 20080201
  9. HOKUNALIN [Concomitant]
     Route: 062
     Dates: start: 20080229
  10. DIFLUCAN [Concomitant]
     Route: 065
     Dates: start: 20080310, end: 20080329
  11. SLOW-K [Concomitant]
     Route: 065
     Dates: start: 20080322, end: 20080324
  12. SLOW-K [Concomitant]
     Route: 065
     Dates: start: 20080325
  13. MEROPEN [Concomitant]
     Route: 065
     Dates: start: 20080307, end: 20080321
  14. RESTAMIN [Concomitant]
     Route: 065
     Dates: start: 20080317, end: 20080401

REACTIONS (4)
  - INSOMNIA [None]
  - PRURITUS [None]
  - RASH [None]
  - VENTRICULAR FIBRILLATION [None]
